FAERS Safety Report 6423474-3 (Version None)
Quarter: 2009Q4

REPORT INFORMATION
  Report Type: 
  Country: None (occurrence: None)
  Receive Date: 20091102
  Receipt Date: 20091026
  Transmission Date: 20100525
  Serious: Yes (Hospitalization, Other)
  Sender: FDA-Public Use
  Company Number: DE-JNJFOC-20090300126

PATIENT
  Sex: Male
  Weight: 52.9 kg

DRUGS (2)
  1. CONCERTA [Suspect]
     Route: 048
     Dates: end: 20090428
  2. CONCERTA [Suspect]
     Indication: ATTENTION DEFICIT/HYPERACTIVITY DISORDER
     Route: 048
     Dates: end: 20090428

REACTIONS (3)
  - GILBERT'S SYNDROME [None]
  - LIVER FUNCTION TEST ABNORMAL [None]
  - MIGRAINE [None]
